FAERS Safety Report 14208352 (Version 1)
Quarter: 2017Q4

REPORT INFORMATION
  Report Type: Spontaneous
  Country: JP (occurrence: JP)
  Receive Date: 20171121
  Receipt Date: 20171121
  Transmission Date: 20180321
  Serious: Yes (Hospitalization)
  Sender: FDA-Public Use
  Company Number: JP-MYLANLABS-2017M1073353

PATIENT
  Age: 5 Decade
  Sex: Male

DRUGS (4)
  1. CLARITHROMYCIN. [Suspect]
     Active Substance: CLARITHROMYCIN
     Indication: UPPER RESPIRATORY TRACT INFLAMMATION
     Route: 048
  2. ZOTEPINE [Concomitant]
     Active Substance: ZOTEPINE
     Indication: SCHIZOPHRENIA
     Route: 048
  3. ARIPIPRAZOLE. [Interacting]
     Active Substance: ARIPIPRAZOLE
     Indication: SCHIZOPHRENIA
     Dosage: 400 MG, MONTHLY
     Route: 030
  4. BLONANSERIN [Concomitant]
     Active Substance: BLONANSERIN
     Indication: SCHIZOPHRENIA
     Route: 048

REACTIONS (3)
  - Eosinophilic granulomatosis with polyangiitis [Recovered/Resolved]
  - Drug interaction [Recovered/Resolved]
  - Drug level increased [Recovered/Resolved]
